FAERS Safety Report 9163125 (Version 1)
Quarter: 2013Q1

REPORT INFORMATION
  Report Type: Spontaneous
  Country: DK (occurrence: None)
  Receive Date: 20130227
  Receipt Date: 20130227
  Transmission Date: 20140127
  Serious: Yes (Other)
  Sender: FDA-Public Use
  Company Number: 2013MA001318

PATIENT
  Age: 20 Year
  Sex: Male

DRUGS (3)
  1. CITALOPRAM HYDROBROMIDE [Suspect]
     Indication: DEPRESSION
     Route: 048
     Dates: start: 20111105, end: 20120802
  2. TRAZODONE (TRAZODONE) [Suspect]
     Route: 048
     Dates: start: 20111227, end: 20120313
  3. VENLAFAXINE (CON.) [Concomitant]

REACTIONS (9)
  - Contraindication to medical treatment [None]
  - Drug interaction [None]
  - Medication error [None]
  - Drug prescribing error [None]
  - Insomnia [None]
  - Hallucination [None]
  - Colour blindness acquired [None]
  - Logorrhoea [None]
  - Expressive language disorder [None]
